FAERS Safety Report 25882017 (Version 1)
Quarter: 2025Q4

REPORT INFORMATION
  Report Type: Spontaneous
  Country: US (occurrence: US)
  Receive Date: 20251006
  Receipt Date: 20251006
  Transmission Date: 20260118
  Serious: Yes (Death)
  Sender: MDD OPERATIONS
  Company Number: US-SUP-SUP202509-003903

PATIENT
  Age: 66 Year
  Sex: Male

DRUGS (1)
  1. OXTELLAR XR [Suspect]
     Active Substance: OXCARBAZEPINE
     Indication: Encephalopathy
     Dosage: 1 TABLET TWICE A DAY

REACTIONS (3)
  - Hepatic cirrhosis [Fatal]
  - Chronic hepatic failure [Fatal]
  - Product use in unapproved indication [Unknown]
